FAERS Safety Report 7264653-5 (Version None)
Quarter: 2011Q1

REPORT INFORMATION
  Report Type: 
  Country: None (occurrence: None)
  Receive Date: 20110119
  Receipt Date: 20110110
  Transmission Date: 20110831
  Serious: Yes (Hospitalization, Other)
  Sender: FDA-Public Use
  Company Number: 2010US004924

PATIENT
  Age: 55 Year
  Sex: Male
  Weight: 91 kg

DRUGS (9)
  1. URSODIOL [Concomitant]
  2. FUROSEMIDE [Concomitant]
  3. PROGRAF [Suspect]
     Indication: LIVER TRANSPLANT
     Dosage: 3 MG, BID, ORAL; 1 MG, BID, ORAL; 2 MG AM, 1 MG PM, ORAL
     Route: 048
     Dates: start: 20090624
  4. MAG-OX (MAGNESIUM OXIDE) [Concomitant]
  5. CALCIUM [Concomitant]
  6. FAMOTIDINE [Concomitant]
  7. FISH OIL [Concomitant]
  8. OMEPRAZOLE [Concomitant]
  9. AMLODIPINE [Concomitant]

REACTIONS (20)
  - SPLENOMEGALY [None]
  - PLEURAL EFFUSION [None]
  - LUNG CONSOLIDATION [None]
  - HEPATIC MASS [None]
  - UMBILICAL HERNIA [None]
  - CHYLOTHORAX [None]
  - POSTOPERATIVE WOUND INFECTION [None]
  - ABDOMINAL HERNIA [None]
  - WOUND SECRETION [None]
  - PNEUMOTHORAX [None]
  - PANCREATIC CYST [None]
  - DISEASE RECURRENCE [None]
  - INCISIONAL HERNIA [None]
  - BENIGN PROSTATIC HYPERPLASIA [None]
  - HAEMATOMA [None]
  - HEPATITIS C [None]
  - LUNG NEOPLASM [None]
  - ASCITES [None]
  - HEPATIC STEATOSIS [None]
  - SEROMA [None]
